FAERS Safety Report 5867060-2 (Version None)
Quarter: 2008Q3

REPORT INFORMATION
  Report Type: 
  Country: None (occurrence: None)
  Receive Date: 20080902
  Receipt Date: 20080826
  Transmission Date: 20090109
  Serious: Yes (Other)
  Sender: FDA-Public Use
  Company Number: B0532475A

PATIENT
  Age: 38 Year
  Sex: Male

DRUGS (1)
  1. ARRANON [Suspect]
     Dosage: 2500MG PER DAY
     Route: 042
     Dates: start: 20080714, end: 20080806

REACTIONS (3)
  - ALANINE AMINOTRANSFERASE INCREASED [None]
  - ASPARTATE AMINOTRANSFERASE INCREASED [None]
  - LIVER DISORDER [None]
